FAERS Safety Report 7518030-X (Version None)
Quarter: 2011Q2

REPORT INFORMATION
  Report Type: 
  Country: None (occurrence: None)
  Receive Date: 20110523
  Receipt Date: 20110509
  Transmission Date: 20111010
  Serious: Yes (Death, Other)
  Sender: FDA-Public Use
  Company Number: 2011MA005614

PATIENT
  Age: 47 Year
  Sex: Female

DRUGS (5)
  1. FLUOXETINE [Suspect]
  2. OXYMORPHONE [Suspect]
  3. MORPHINE [Suspect]
  4. CHLORDIAZEPOXIDE [Suspect]
  5. ETHANOL [Suspect]

REACTIONS (3)
  - PULMONARY CONGESTION [None]
  - ACCIDENTAL DEATH [None]
  - TOXICITY TO VARIOUS AGENTS [None]
